FAERS Safety Report 6713438-4 (Version None)
Quarter: 2010Q2

REPORT INFORMATION
  Report Type: 
  Country: None (occurrence: None)
  Receive Date: 20100506
  Receipt Date: 20100419
  Transmission Date: 20101027
  Serious: Yes (Disabling)
  Sender: FDA-Public Use
  Company Number: FR-ROCHE-701335

PATIENT
  Age: 67 Year
  Sex: Female

DRUGS (7)
  1. TRASTUZUMAB [Suspect]
     Indication: BREAST CANCER
     Dosage: FREQUENCY: EVERY CYCLE. FORM: SOLUTION FOR INFUSION
     Route: 042
     Dates: start: 20080201, end: 20080801
  2. CYCLOPHOSPHAMIDE [Suspect]
     Indication: BREAST CANCER
     Dosage: DOSE: 500 MILLIGRAM/M2; FREQUENCY: EVERY CYCLE; FORM: SOLUTION FOR INFUSION
     Route: 041
     Dates: start: 20071201, end: 20080201
  3. EPIRUBICIN [Suspect]
     Indication: BREAST CANCER
     Dosage: DOSE: 100 MILLIGRAM/M2; FREQUENCY: EVERY CYCLE; FORM: SOLUTION FOR INFUSION
     Route: 041
     Dates: start: 20071201, end: 20080201
  4. FLUOROURACIL [Suspect]
     Indication: BREAST CANCER
     Dosage: DOSE: 500 MILLIGRAM/M2; FREQUENCY: EVERY CYCLE; SOLUTION FOR INFUSION;
     Route: 041
     Dates: start: 20071201, end: 20080201
  5. DOCETAXEL [Suspect]
     Indication: BREAST CANCER
     Dosage: DOSE: 100 MILLIGRAM/M2; FREQUENCY: EVERY CYCLE; FORM: SOLUTION FOR INFUSION.
     Route: 041
     Dates: start: 20080201, end: 20080401
  6. FEMARA [Concomitant]
     Dates: start: 20070901
  7. LEVOTHYROX [Concomitant]

REACTIONS (1)
  - ALOPECIA [None]
